FAERS Safety Report 10079716 (Version 3)
Quarter: 2014Q2

REPORT INFORMATION
  Report Type: Report from Study
  Country: FR (occurrence: FR)
  Receive Date: 20140415
  Receipt Date: 20140601
  Transmission Date: 20141212
  Serious: Yes (Other)
  Sender: FDA-Public Use
  Company Number: FR-VERTEX PHARMACEUTICALS INC-2014-001831

PATIENT
  Age: 23 Year
  Sex: Male
  Weight: 59 kg

DRUGS (7)
  1. VX-809 FDC [Suspect]
     Indication: CYSTIC FIBROSIS
     Dosage: 600 MG, QD
     Route: 048
     Dates: start: 20140226, end: 20140405
  2. VX-770 FDC [Suspect]
     Indication: CYSTIC FIBROSIS
     Dosage: 250 MG, QD AM
     Route: 048
     Dates: start: 20140226, end: 20140405
  3. VX-770 [Suspect]
     Indication: CYSTIC FIBROSIS
     Dosage: 250 MG, QD PM
     Route: 048
     Dates: start: 20140226, end: 20140405
  4. VX-809 FDC [Suspect]
     Indication: CYSTIC FIBROSIS
     Dosage: 600 MG, QD
     Route: 048
     Dates: start: 20130910, end: 20140225
  5. VX-770 FDC [Suspect]
     Indication: CYSTIC FIBROSIS
     Dosage: 250 MG, QD AM
     Route: 048
     Dates: start: 20130910, end: 20140225
  6. VX-770 [Suspect]
     Indication: CYSTIC FIBROSIS
     Dosage: 250 MG, QD PM
     Route: 048
     Dates: start: 20130910, end: 20140225
  7. INNOVAIR [Concomitant]
     Indication: ASTHMA
     Dosage: UNK, BID

REACTIONS (1)
  - Dyspnoea [Recovered/Resolved]
